FAERS Safety Report 7569713-7 (Version None)
Quarter: 2011Q2

REPORT INFORMATION
  Report Type: 
  Country: None (occurrence: None)
  Receive Date: 20110624
  Receipt Date: 20110621
  Transmission Date: 20111010
  Serious: Yes (Other)
  Sender: FDA-Public Use
  Company Number: US-PFIZER INC-2011137813

PATIENT
  Age: 75 Year
  Sex: Female
  Weight: 47.619 kg

DRUGS (1)
  1. LIPITOR [Suspect]
     Indication: BLOOD CHOLESTEROL INCREASED
     Dosage: 25 MG, DAILY
     Route: 048
     Dates: start: 20110501

REACTIONS (1)
  - URTICARIA CHRONIC [None]
